FAERS Safety Report 13005782 (Version 1)
Quarter: 2016Q4

REPORT INFORMATION
  Report Type: Spontaneous
  Country: JP (occurrence: JP)
  Receive Date: 20161207
  Receipt Date: 20161207
  Transmission Date: 20170207
  Serious: Yes (Other)
  Sender: FDA-Public Use
  Company Number: JP-PFIZER INC-2016557576

PATIENT
  Age: 80 Year
  Sex: Male

DRUGS (1)
  1. AZULFIDINE EN-TABS [Suspect]
     Active Substance: SULFASALAZINE
     Dosage: UNK
     Dates: start: 201508, end: 201508

REACTIONS (2)
  - Agranulocytosis [Unknown]
  - Infection [Unknown]
